FAERS Safety Report 9523040 (Version 7)
Quarter: 2013Q4

REPORT INFORMATION
  Report Type: Spontaneous
  Country: US (occurrence: US)
  Receive Date: 20130913
  Receipt Date: 20131129
  Transmission Date: 20140711
  Serious: Yes (Hospitalization, Other)
  Sender: FDA-Public Use
  Company Number: CHPA2013US014044

PATIENT
  Age: 59 Year
  Sex: Female

DRUGS (23)
  1. VOLTAREN GEL [Suspect]
     Indication: BACK PAIN
     Dosage: A DAB TO 4 GRAMS, UNK
     Route: 061
     Dates: start: 20130624
  2. VOLTAREN GEL [Suspect]
     Indication: ARTHRALGIA
  3. VOLTAREN GEL [Suspect]
     Indication: OSTEOARTHRITIS
  4. VOLTAREN GEL [Suspect]
     Indication: ARTHRALGIA
  5. PRAVASTATIN [Concomitant]
     Indication: BLOOD CHOLESTEROL INCREASED
     Dosage: 40 MG, QD
  6. PRAVASTATIN [Concomitant]
     Dosage: 80 MG, QD
     Dates: start: 201307
  7. LEVOTHYROXINE [Concomitant]
     Indication: THYROID DISORDER
     Dosage: 50 UG, UNK
  8. PROTONIX [Concomitant]
     Indication: GASTRIC DISORDER
     Dosage: 40 MG, QD
  9. AMLODIPINE [Concomitant]
     Dosage: 10 MG, UNK
  10. LISINOPRIL [Concomitant]
     Dosage: 20 MG, QD
  11. FUROSEMIDE [Concomitant]
     Dosage: 80 MG, QD
  12. FENOFIBRATE [Concomitant]
     Indication: BLOOD TRIGLYCERIDES INCREASED
     Dosage: UNK
     Dates: start: 20130620
  13. ALLOPURINOL [Concomitant]
     Indication: GOUT
     Dosage: 300 MG, UNK
  14. METOPROLOL [Concomitant]
     Dosage: 200 MG, QD
  15. MORPHINE [Concomitant]
     Dosage: 30 MG, TID, PRN
  16. XANAX [Concomitant]
     Indication: ANXIETY
     Dosage: 2 MG, UNK
  17. ASPIRIN [Concomitant]
     Dosage: 325 MG, UNK
  18. DULERA [Concomitant]
     Indication: DYSPNOEA
     Dosage: UNK, UNK
  19. DICYCLOMINE [Concomitant]
     Indication: ABDOMINAL PAIN UPPER
     Dosage: UNK
     Dates: start: 20130612
  20. SERTRALINE [Concomitant]
     Indication: ANXIETY
     Dosage: 100 MG, QHS
  21. CLONIDINE [Concomitant]
     Indication: HYPERTENSION
     Dosage: 0.2 MG, UNK
  22. GLIMEPIRIDE [Concomitant]
     Dosage: 8 MG, QD
  23. MORPHINE [Concomitant]
     Indication: PAIN
     Dosage: UNK, UNK

REACTIONS (17)
  - Influenza [Recovered/Resolved]
  - Abnormal behaviour [Recovered/Resolved]
  - Cerebrovascular accident [Recovered/Resolved]
  - Renal disorder [Recovered/Resolved]
  - Pneumonia [Recovering/Resolving]
  - Clostridium difficile infection [Recovered/Resolved]
  - Impaired gastric emptying [Not Recovered/Not Resolved]
  - Blood cholesterol increased [Not Recovered/Not Resolved]
  - Anaemia [Not Recovered/Not Resolved]
  - Arthralgia [Not Recovered/Not Resolved]
  - Cough [Not Recovered/Not Resolved]
  - Local swelling [Not Recovered/Not Resolved]
  - Diarrhoea [Recovered/Resolved]
  - Abdominal pain upper [Not Recovered/Not Resolved]
  - Therapeutic response unexpected [Unknown]
  - Drug administered at inappropriate site [Unknown]
  - Off label use [Unknown]
